FAERS Safety Report 5742902-X (Version None)
Quarter: 2008Q2

REPORT INFORMATION
  Report Type: 
  Country: None (occurrence: None)
  Receive Date: 20080519
  Receipt Date: 20080513
  Transmission Date: 20081010
  Serious: Yes (Hospitalization)
  Sender: FDA-Public Use
  Company Number: US-KINGPHARMUSA00001-K200800549

PATIENT

DRUGS (3)
  1. ALTACE [Suspect]
     Indication: BLOOD PRESSURE
     Dosage: 5 MG, UNK
     Dates: start: 20030101, end: 20080501
  2. ALTACE [Suspect]
     Dosage: 10 MG, UNK
     Dates: start: 20080501, end: 20080501
  3. ALTACE [Suspect]
     Dosage: 15 MG, UNK
     Dates: start: 20080501, end: 20080501

REACTIONS (3)
  - BLOOD PRESSURE INCREASED [None]
  - DRUG INEFFECTIVE [None]
  - STRESS [None]
